FAERS Safety Report 7650526-2 (Version None)
Quarter: 2011Q3

REPORT INFORMATION
  Report Type: 
  Country: None (occurrence: None)
  Receive Date: 20110802
  Receipt Date: 20110720
  Transmission Date: 20111222
  Serious: Yes (Hospitalization)
  Sender: FDA-Public Use
  Company Number: US-GLAXOSMITHKLINE-B0717235A

PATIENT
  Age: 47 Year
  Sex: Female
  Weight: 77.3 kg

DRUGS (2)
  1. AVANDARYL [Suspect]
     Indication: DIABETES MELLITUS
     Dosage: 2TAB PER DAY
     Route: 048
  2. AVANDIA [Suspect]
     Indication: DIABETES MELLITUS
     Dosage: 4MG PER DAY
     Route: 048
     Dates: start: 19970101, end: 20080101

REACTIONS (4)
  - DIZZINESS [None]
  - HEADACHE [None]
  - ASTHENIA [None]
  - CEREBROVASCULAR ACCIDENT [None]
